FAERS Safety Report 4587019-5 (Version None)
Quarter: 2005Q1

REPORT INFORMATION
  Report Type: 
  Country: None (occurrence: None)
  Receive Date: 20050218
  Receipt Date: 20050209
  Transmission Date: 20050727
  Serious: Yes (Death)
  Sender: FDA-Public Use
  Company Number: ES-BRISTOL-MYERS SQUIBB COMPANY-12857066

PATIENT
  Age: 67 Year
  Sex: Male

DRUGS (11)
  1. CISPLATIN [Suspect]
     Indication: GLIOBLASTOMA MULTIFORME
     Route: 042
     Dates: start: 20000818, end: 20000818
  2. TEMODAL [Suspect]
     Indication: GLIOBLASTOMA MULTIFORME
     Route: 048
     Dates: start: 20000818, end: 20000822
  3. RADIATION THERAPY [Concomitant]
     Indication: GLIOBLASTOMA MULTIFORME
     Dosage: 60 GY
     Dates: start: 20000918, end: 20001030
  4. STESOLID [Concomitant]
     Route: 054
     Dates: end: 20010208
  5. LORAZEPAM [Concomitant]
     Route: 048
     Dates: end: 20010208
  6. METAMIZOLE [Concomitant]
     Route: 048
     Dates: end: 20010208
  7. DEXAMETHASONE [Concomitant]
     Route: 048
     Dates: end: 20010208
  8. ALMAGATE [Concomitant]
     Route: 048
     Dates: end: 20010208
  9. PHENYTOIN [Concomitant]
     Route: 048
     Dates: end: 20010208
  10. POLYETHYLENE GLYCOL [Concomitant]
     Dates: end: 20010208
  11. PANTOPRAZOLE [Concomitant]
     Dates: end: 20010208

REACTIONS (4)
  - CARDIOPULMONARY FAILURE [None]
  - CONVULSION [None]
  - EPILEPSY [None]
  - MALIGNANT NEOPLASM PROGRESSION [None]
